FAERS Safety Report 9683520 (Version 4)
Quarter: 2014Q1

REPORT INFORMATION
  Report Type: Spontaneous
  Country: AU (occurrence: AU)
  Receive Date: 20131112
  Receipt Date: 20140226
  Transmission Date: 20141002
  Serious: Yes (Life-Threatening, Hospitalization, Other)
  Sender: FDA-Public Use
  Company Number: AU-AMGEN-AUSSP2013072327

PATIENT
  Age: 48 Year
  Sex: Female
  Weight: 90 kg

DRUGS (3)
  1. XGEVA [Suspect]
     Indication: METASTASES TO BONE
     Dosage: 120 MG, Q4WK
     Route: 058
     Dates: start: 20130415
  2. XGEVA [Suspect]
     Indication: BREAST CANCER
  3. TAMOXIFEN [Concomitant]

REACTIONS (14)
  - Impaired healing [Not Recovered/Not Resolved]
  - Deep vein thrombosis [Unknown]
  - Pulmonary embolism [Unknown]
  - Foot fracture [Not Recovered/Not Resolved]
  - Pain [Not Recovered/Not Resolved]
  - Back pain [Recovering/Resolving]
  - Bone pain [Not Recovered/Not Resolved]
  - Hot flush [Unknown]
  - Feeling abnormal [Unknown]
  - Fatigue [Recovered/Resolved]
  - Weight decreased [Unknown]
  - Contusion [Not Recovered/Not Resolved]
  - Gait disturbance [Unknown]
  - Blood calcium decreased [Unknown]
